FAERS Safety Report 20654194 (Version 1)
Quarter: 2022Q1

REPORT INFORMATION
  Report Type: Spontaneous
  Country: US (occurrence: US)
  Receive Date: 20220330
  Receipt Date: 20220330
  Transmission Date: 20220423
  Serious: Yes (Hospitalization)
  Sender: FDA-Public Use
  Company Number: US-MYLANLABS-2022M1023549

PATIENT
  Age: 36 Year
  Sex: Female

DRUGS (3)
  1. PREDNISONE [Suspect]
     Active Substance: PREDNISONE
     Indication: Relapsing-remitting multiple sclerosis
     Dosage: UNK, ORAL PREDNISONE TAPER AFTER EACH RELAPSE
     Route: 048
  2. GLATIRAMER [Suspect]
     Active Substance: GLATIRAMER
     Indication: Relapsing-remitting multiple sclerosis
     Dosage: UNK
     Route: 065
  3. METHYLPREDNISOLONE [Suspect]
     Active Substance: METHYLPREDNISOLONE
     Indication: Relapsing-remitting multiple sclerosis
     Dosage: UNK, FIVE DAYS OF HIGH-DOSE INTRAVENOUS METHYLPREDNISOLONE AFTER EACH RELAPSE
     Route: 042

REACTIONS (7)
  - Herpes simplex reactivation [Recovering/Resolving]
  - Myelitis [Recovering/Resolving]
  - Cauda equina syndrome [Recovering/Resolving]
  - Anal incontinence [Recovering/Resolving]
  - Urinary incontinence [Recovering/Resolving]
  - Paraplegia [Not Recovered/Not Resolved]
  - Hypotonia [Not Recovered/Not Resolved]
